FAERS Safety Report 5745489-0 (Version None)
Quarter: 2008Q2

REPORT INFORMATION
  Report Type: 
  Country: None (occurrence: None)
  Receive Date: 20080521
  Receipt Date: 20080509
  Transmission Date: 20081010
  Serious: Yes (Hospitalization, Other)
  Sender: FDA-Public Use
  Company Number: US-ELI_LILLY_AND_COMPANY-US200805001921

PATIENT
  Age: 57 Year
  Sex: Male

DRUGS (9)
  1. CYMBALTA [Suspect]
     Indication: RESTLESS LEGS SYNDROME
     Dosage: 60 MG, DAILY (1/D)
  2. OXYCONTIN [Concomitant]
  3. KLONOPIN [Concomitant]
  4. IBUPROFEN [Concomitant]
  5. PREDNISONE TAB [Concomitant]
  6. HYDROCHLOROTHIAZIDE [Concomitant]
  7. SYNTHROID [Concomitant]
  8. RANITIDINE [Concomitant]
  9. MULTI-VITAMIN [Concomitant]

REACTIONS (2)
  - LUNG NEOPLASM MALIGNANT [None]
  - PNEUMONIA [None]
